FAERS Safety Report 5741951-5 (Version None)
Quarter: 2008Q2

REPORT INFORMATION
  Report Type: 
  Country: None (occurrence: None)
  Receive Date: 20080519
  Receipt Date: 20080513
  Transmission Date: 20081010
  Serious: Yes (Other)
  Sender: FDA-Public Use
  Company Number: PHBS2007BR20737

PATIENT
  Age: 28 Year
  Sex: Female
  Weight: 48 kg

DRUGS (5)
  1. OLCADIL [Suspect]
     Indication: ANXIETY DISORDER
     Dosage: 1 MG, QD AFTER DINNER
     Route: 048
     Dates: start: 20071208
  2. CARBOLITIUM [Concomitant]
     Indication: ANXIETY DISORDER
     Dosage: 300 MG, Q12H
     Route: 048
     Dates: start: 20071208
  3. IMIPRAMINE [Concomitant]
     Indication: ANXIETY DISORDER
     Dosage: UNK, BID
     Route: 048
     Dates: start: 20071208
  4. CYPROTERONE ACETATE/ETHINYLESTRADIOL [Concomitant]
     Indication: CONTRACEPTION
     Dosage: UNK, QD
     Route: 048
     Dates: start: 20070901
  5. TOFRANIL [Suspect]
     Indication: DEPRESSION
     Dosage: 25 MG, Q12H
     Route: 048
     Dates: start: 20071201

REACTIONS (17)
  - ANOREXIA [None]
  - BREAST ENLARGEMENT [None]
  - DELIRIUM [None]
  - DEPRESSION [None]
  - DRUG INEFFECTIVE [None]
  - HALLUCINATION [None]
  - HEADACHE [None]
  - INSOMNIA [None]
  - MALAISE [None]
  - MIGRAINE [None]
  - MOOD ALTERED [None]
  - NEGATIVE THOUGHTS [None]
  - NIGHTMARE [None]
  - PAIN [None]
  - PANIC REACTION [None]
  - TREMOR [None]
  - WEIGHT INCREASED [None]
